FAERS Safety Report 21559793 (Version 1)
Quarter: 2022Q4

REPORT INFORMATION
  Report Type: Spontaneous
  Country: DE (occurrence: DE)
  Receive Date: 20221107
  Receipt Date: 20221107
  Transmission Date: 20230113
  Serious: Yes (Hospitalization)
  Sender: FDA-Public Use
  Company Number: DE-ADRED-07084-02

PATIENT
  Age: 90 Year
  Sex: Male
  Weight: 65 kg

DRUGS (9)
  1. RAMIPRIL [Suspect]
     Active Substance: RAMIPRIL
     Indication: Product used for unknown indication
     Dosage: 2.5 MG, 1-0-0-0, TABLET
     Route: 048
  2. ALLOPURINOL [Suspect]
     Active Substance: ALLOPURINOL
     Indication: Product used for unknown indication
     Dosage: 100 MG, 1-0-0-0, TABLET
     Route: 048
  3. TORSEMIDE [Suspect]
     Active Substance: TORSEMIDE
     Indication: Product used for unknown indication
     Dosage: 10 MG, 0.5-0-0-0, TABLET
     Route: 048
  4. ASPIRIN [Concomitant]
     Active Substance: ASPIRIN
     Dosage: 100 MG, 1-0-0-0, TABLET
     Route: 048
  5. DONEPEZIL [Concomitant]
     Active Substance: DONEPEZIL
     Dosage: 10 MG, 1-0-0-0, TABLET
     Route: 048
  6. DIMETHINDENE [Concomitant]
     Active Substance: DIMETHINDENE
     Dosage: 1 MG, NEED, DROPS
     Route: 048
  7. CITALOPRAM [Concomitant]
     Active Substance: CITALOPRAM HYDROBROMIDE
     Dosage: 20 MG, 1-0-0-0, TABLET
     Route: 048
  8. SIMVASTATIN [Concomitant]
     Active Substance: SIMVASTATIN
     Dosage: 20 MG, 0-0-1-0, TABLET
     Route: 048
  9. PREGABALIN [Concomitant]
     Active Substance: PREGABALIN
     Dosage: 25 MG, 0-0-1-0, CAPSULES
     Route: 048

REACTIONS (4)
  - Fatigue [Unknown]
  - Renal failure [Unknown]
  - Acute kidney injury [Unknown]
  - Renal impairment [Unknown]
